FAERS Safety Report 14227123 (Version 2)
Quarter: 2017Q4

REPORT INFORMATION
  Report Type: Spontaneous
  Country: FR (occurrence: FR)
  Receive Date: 20171127
  Receipt Date: 20171127
  Transmission Date: 20180321
  Serious: Yes (Hospitalization, Other)
  Sender: FDA-Public Use
  Company Number: FR-JNJFOC-20171118701

PATIENT

DRUGS (4)
  1. ADALIMUMAB [Suspect]
     Active Substance: ADALIMUMAB
     Indication: NEUROSARCOIDOSIS
     Route: 058
  2. ETANERCEPT [Suspect]
     Active Substance: ETANERCEPT
     Indication: NEUROSARCOIDOSIS
     Route: 065
  3. INFLIXIMAB, RECOMBINANT [Suspect]
     Active Substance: INFLIXIMAB
     Indication: SARCOIDOSIS
     Dosage: 3-5 MG/KG AT WEEK 0,2,6 AND THEN EVERY 4-8 WEEKS
     Route: 042
  4. CERTOLIZUMAB PEGOL [Suspect]
     Active Substance: CERTOLIZUMAB PEGOL
     Indication: NEUROSARCOIDOSIS
     Dosage: 400 MG AT WEEK 0,2 AND 4 AND THEN 200 MG EVERY OTHER WEEK
     Route: 058

REACTIONS (21)
  - Serum sickness-like reaction [Unknown]
  - Hypersensitivity [Unknown]
  - Pneumocystis jirovecii pneumonia [Unknown]
  - Drug ineffective [Unknown]
  - Bacterial sepsis [Unknown]
  - Off label use [Unknown]
  - Mycobacterial infection [Unknown]
  - Demyelination [Unknown]
  - Pneumonia [Unknown]
  - Herpes zoster [Unknown]
  - Aspergillus infection [Unknown]
  - Cytomegalovirus infection [Unknown]
  - Cryptococcosis [Unknown]
  - Malignant neoplasm of ampulla of Vater [Unknown]
  - Hepatitis B reactivation [Unknown]
  - Hodgkin^s disease [Unknown]
  - Legionella infection [Unknown]
  - Granuloma [Unknown]
  - Drug specific antibody present [Unknown]
  - Product use in unapproved indication [Unknown]
  - Urinary tract infection [Unknown]
